FAERS Safety Report 22018536 (Version 1)
Quarter: 2023Q1

REPORT INFORMATION
  Report Type: Report from Study
  Country: US (occurrence: US)
  Receive Date: 20230222
  Receipt Date: 20230222
  Transmission Date: 20230418
  Serious: Yes (Death)
  Sender: FDA-Public Use
  Company Number: US-ABBVIE-4314401

PATIENT
  Age: 90 Year
  Sex: Male

DRUGS (2)
  1. IMBRUVICA [Suspect]
     Active Substance: IBRUTINIB
     Indication: Prostate cancer
     Route: 048
     Dates: start: 20170527, end: 20180426
  2. IMBRUVICA [Suspect]
     Active Substance: IBRUTINIB
     Indication: Prostate cancer
     Route: 048
     Dates: end: 20230201

REACTIONS (1)
  - Death [Fatal]

NARRATIVE: CASE EVENT DATE: 20230201
